FAERS Safety Report 12000956 (Version 1)
Quarter: 2016Q1

REPORT INFORMATION
  Report Type: Spontaneous
  Country: US (occurrence: US)
  Receive Date: 20160204
  Receipt Date: 20160204
  Transmission Date: 20160526
  Serious: Yes (Other)
  Sender: FDA-Public Use
  Company Number: US-SHIONOGI, INC.-2016000089

PATIENT
  Age: 48 Year
  Sex: Female

DRUGS (2)
  1. WELLBUTRIN [Concomitant]
     Active Substance: BUPROPION HYDROCHLORIDE
     Indication: ANXIETY
     Dosage: UNK
     Route: 065
     Dates: start: 2006
  2. OSPHENA [Suspect]
     Active Substance: OSPEMIFENE
     Indication: DYSPAREUNIA
     Dosage: 60 MG, QD
     Route: 048
     Dates: start: 2015, end: 20151026

REACTIONS (10)
  - Dyspnoea [Recovered/Resolved]
  - Uterine leiomyoma [Recovered/Resolved]
  - Marital problem [Unknown]
  - Post procedural haemorrhage [Unknown]
  - Attention deficit/hyperactivity disorder [Not Recovered/Not Resolved]
  - Drug prescribing error [Unknown]
  - Dyspareunia [Not Recovered/Not Resolved]
  - Pulmonary embolism [Recovered/Resolved]
  - Vaginal haemorrhage [Not Recovered/Not Resolved]
  - Metrorrhagia [Not Recovered/Not Resolved]

NARRATIVE: CASE EVENT DATE: 2015
